FAERS Safety Report 11521280 (Version 1)
Quarter: 2015Q3

REPORT INFORMATION
  Report Type: Spontaneous
  Country: US (occurrence: US)
  Receive Date: 20150918
  Receipt Date: 20150918
  Transmission Date: 20151125
  Serious: No
  Sender: FDA-Public Use
  Company Number: US-ROCHE-702583

PATIENT
  Sex: Male

DRUGS (3)
  1. PEGASYS [Suspect]
     Active Substance: PEGINTERFERON ALFA-2A
     Indication: HEPATITIS C
     Dosage: FORM: PFS
     Route: 065
     Dates: start: 20100303, end: 20110126
  2. RIBAVIRIN. [Suspect]
     Active Substance: RIBAVIRIN
     Dosage: DIVIDED DOSES, FORM:PILLS
     Route: 048
     Dates: start: 20100303, end: 20110126
  3. RIBAVIRIN. [Suspect]
     Active Substance: RIBAVIRIN
     Indication: HEPATITIS C
     Dosage: MEDICATION ERROR
     Route: 048

REACTIONS (5)
  - No adverse event [Unknown]
  - Nausea [Not Recovered/Not Resolved]
  - Vomiting [Not Recovered/Not Resolved]
  - Extra dose administered [Unknown]
  - Diarrhoea [Not Recovered/Not Resolved]
